FAERS Safety Report 6830033-7 (Version None)
Quarter: 2010Q3

REPORT INFORMATION
  Report Type: 
  Country: None (occurrence: None)
  Receive Date: 20100711
  Receipt Date: 20100426
  Transmission Date: 20110219
  Serious: No
  Sender: FDA-Public Use
  Company Number: US-ALLERGAN-1005415US

PATIENT
  Sex: Female

DRUGS (7)
  1. LATISSE [Suspect]
     Indication: GROWTH OF EYELASHES
     Dosage: UNK
  2. LEVOTHYROXINE SODIUM [Concomitant]
     Indication: HYPOTHYROIDISM
  3. GENTEAL                            /00445101/ [Concomitant]
     Dosage: UNK
  4. ATENOLOL [Concomitant]
     Dosage: UNK
  5. HYDROCHLOROTHIAZIDE [Concomitant]
     Dosage: UNK
  6. TRI-CORE [Concomitant]
     Dosage: UNK
  7. COMBINATIONS OF VITAMINS [Concomitant]
     Dosage: UNK

REACTIONS (2)
  - ERYTHEMA [None]
  - EYELID OEDEMA [None]
